FAERS Safety Report 16055809 (Version 1)
Quarter: 2019Q2

REPORT INFORMATION
  Report Type: Spontaneous
  Country: US (occurrence: US)
  Receive Date: 20190308
  Receipt Date: 20190308
  Transmission Date: 20190711
  Serious: No
  Sender: FDA-Public Use
  Company Number: None

PATIENT
  Age: 32 Year
  Sex: Male
  Weight: 78.75 kg

DRUGS (1)
  1. TL 708 (METHYLPHENIDATE ER 36MG) [Suspect]
     Active Substance: METHYLPHENIDATE
     Indication: ATTENTION DEFICIT/HYPERACTIVITY DISORDER
     Dosage: ?          QUANTITY:1 TABLET(S);?
     Route: 048
     Dates: start: 20190211, end: 20190308

REACTIONS (3)
  - Product substitution issue [None]
  - Therapeutic product effect incomplete [None]
  - Therapeutic response changed [None]

NARRATIVE: CASE EVENT DATE: 20190218
